FAERS Safety Report 11124336 (Version 3)
Quarter: 2015Q3

REPORT INFORMATION
  Report Type: Spontaneous
  Country: JP (occurrence: JP)
  Receive Date: 20150520
  Receipt Date: 20150811
  Transmission Date: 20151125
  Serious: Yes (Hospitalization)
  Sender: FDA-Public Use
  Company Number: JP-AMGEN-JPNSP2015046274

PATIENT
  Age: 65 Year
  Sex: Male
  Weight: 59 kg

DRUGS (13)
  1. LOXONIN [Suspect]
     Active Substance: LOXOPROFEN SODIUM
     Indication: CANCER PAIN
     Dosage: 60 MG, TID
     Route: 048
     Dates: start: 20150423, end: 20150506
  2. MUCOSTA [Suspect]
     Active Substance: REBAMIPIDE
     Indication: CANCER PAIN
     Dosage: 100 MG, TID
     Route: 048
     Dates: start: 20150423, end: 20150506
  3. MAGLAX [Suspect]
     Active Substance: MAGNESIUM OXIDE
     Indication: CANCER PAIN
     Dosage: 330 MG, TID
     Route: 048
     Dates: start: 20150423, end: 20150506
  4. RANMARK [Suspect]
     Active Substance: DENOSUMAB
     Indication: METASTASES TO BONE
     Dosage: 120 MG, UNK
     Route: 058
     Dates: start: 20150427
  5. PICIBANIL [Concomitant]
     Active Substance: OK-432
     Indication: MALIGNANT PLEURAL EFFUSION
     Dosage: 10 DF, QD
     Route: 038
     Dates: start: 20150426, end: 20150426
  6. PANVITAN                           /05664201/ [Suspect]
     Active Substance: VITAMINS
     Indication: LUNG ADENOCARCINOMA
     Dosage: 1 G, QD
     Route: 048
     Dates: start: 20150425, end: 20150506
  7. XYLOCAINE                          /00033402/ [Concomitant]
     Indication: MALIGNANT PLEURAL EFFUSION
     Dosage: 100 MG, QD
     Route: 038
     Dates: start: 20150426, end: 20150426
  8. NOVAMIN                            /00013304/ [Suspect]
     Active Substance: PROCHLORPERAZINE MALEATE
     Indication: CANCER PAIN
     Dosage: 5 MG, TID
     Route: 048
     Dates: start: 20150423, end: 20150506
  9. OXYCONTIN [Suspect]
     Active Substance: OXYCODONE HYDROCHLORIDE
     Indication: CANCER PAIN
     Dosage: 5 MG, BID
     Route: 048
     Dates: start: 20150423, end: 20150506
  10. DENOTAS [Suspect]
     Active Substance: CALCIUM CARBONATE\CHOLECALCIFEROL\MAGNESIUM CARBONATE
     Indication: METASTASES TO BONE
     Dosage: 2 DF, QD
     Route: 048
     Dates: start: 20150427, end: 20150506
  11. GILOTRIF [Suspect]
     Active Substance: AFATINIB
     Indication: LUNG ADENOCARCINOMA
     Dosage: 40 MG, QD
     Route: 048
     Dates: start: 20150502, end: 20150506
  12. MINOCYCLINE [Concomitant]
     Active Substance: MINOCYCLINE\MINOCYCLINE HYDROCHLORIDE
     Indication: MALIGNANT PLEURAL EFFUSION
     Dosage: 100 MG, QD
     Route: 038
     Dates: start: 20150426, end: 20150426
  13. NOVO HEPARIN [Suspect]
     Active Substance: HEPARIN SODIUM
     Indication: TROUSSEAU^S SYNDROME
     Dosage: 10000 IU, CIV/24HR
     Route: 041
     Dates: start: 20150426, end: 20150510

REACTIONS (3)
  - Eosinophil count increased [Not Recovered/Not Resolved]
  - Rash [Recovering/Resolving]
  - Eosinophil count increased [Recovered/Resolved]

NARRATIVE: CASE EVENT DATE: 20150428
